FAERS Safety Report 8376211-X (Version None)
Quarter: 2012Q2

REPORT INFORMATION
  Report Type: 
  Country: None (occurrence: None)
  Receive Date: 20120522
  Receipt Date: 20111123
  Transmission Date: 20120825
  Serious: Yes (Hospitalization, Disabling, Other)
  Sender: FDA-Public Use
  Company Number: BR-ASTRAZENECA-2011SE71518

PATIENT
  Age: 73 Year
  Sex: Female
  Weight: 61 kg

DRUGS (11)
  1. LIPITOR [Concomitant]
     Route: 048
     Dates: start: 20090101
  2. ALPRAZOLAM [Concomitant]
     Route: 048
     Dates: start: 20080101
  3. ATENOLOL [Suspect]
     Indication: ARRHYTHMIA
     Route: 048
     Dates: start: 20110501
  4. ATACAND [Suspect]
     Route: 048
  5. PROPAFENONE HCL [Concomitant]
     Dosage: 1/2 TABLET
     Route: 048
     Dates: start: 20090201
  6. CLOPIDOGREL [Concomitant]
     Route: 048
     Dates: start: 20090101
  7. SUSTRATE [Suspect]
     Dosage: OD
     Route: 048
     Dates: end: 20111001
  8. VASTAREL [Concomitant]
     Dosage: BID
     Route: 048
     Dates: start: 20090101
  9. SUSTRATE [Suspect]
     Dosage: BID
     Route: 048
  10. ATACAND [Suspect]
     Indication: HYPERTENSION
     Route: 048
     Dates: start: 20090101, end: 20110101
  11. PANTOPRAZOLE [Concomitant]
     Route: 048

REACTIONS (8)
  - INAPPROPRIATE SCHEDULE OF DRUG ADMINISTRATION [None]
  - ISCHAEMIA [None]
  - BLOOD PRESSURE INCREASED [None]
  - HEADACHE [None]
  - RETINAL ARTERY THROMBOSIS [None]
  - DRUG DOSE OMISSION [None]
  - ARRHYTHMIA [None]
  - INCORRECT DOSE ADMINISTERED [None]
